FAERS Safety Report 23794528 (Version 2)
Quarter: 2024Q4

REPORT INFORMATION
  Report Type: Report from Study
  Country: DE (occurrence: DE)
  Receive Date: 20240429
  Receipt Date: 20241029
  Transmission Date: 20250115
  Serious: Yes (Other)
  Sender: MYLAN
  Company Number: DE-UCBSA-2024017919

PATIENT
  Sex: Female

DRUGS (2)
  1. METHOTREXATE [Suspect]
     Active Substance: METHOTREXATE
     Indication: Product used for unknown indication
     Dosage: UNK
     Route: 065
  2. CERTOLIZUMAB PEGOL [Suspect]
     Active Substance: CERTOLIZUMAB PEGOL
     Indication: Rheumatoid arthritis
     Dosage: UNK,(SOLUTION FOR INJECTION IN PRE-FILLED SYRINGE)
     Route: 065

REACTIONS (6)
  - Renal failure [Unknown]
  - Hyperhidrosis [Unknown]
  - Abdominal pain upper [Recovered/Resolved]
  - Oedema peripheral [Not Recovered/Not Resolved]
  - Fibroadenoma of breast [Unknown]
  - Upper respiratory tract infection [Recovered/Resolved]

NARRATIVE: CASE EVENT DATE: 20230616
